FAERS Safety Report 17969989 (Version 1)
Quarter: 2020Q3

REPORT INFORMATION
  Report Type: Spontaneous
  Country: US (occurrence: US)
  Receive Date: 20200701
  Receipt Date: 20200701
  Transmission Date: 20201103
  Serious: Yes (Hospitalization)
  Sender: FDA-Public Use
  Company Number: US-GENERICUS, INC.-2020GNR00023

PATIENT
  Sex: Female

DRUGS (1)
  1. TOBRAMYCIN. [Suspect]
     Active Substance: TOBRAMYCIN
     Indication: CYSTIC FIBROSIS
     Dosage: 300 MG/5ML (1 VIAL) VIA NEBULIZER, 2X/DAY 28 DAYS ON AND 28 DAYS OFF
     Dates: start: 20190510

REACTIONS (2)
  - Infection [Not Recovered/Not Resolved]
  - Pneumothorax [Not Recovered/Not Resolved]

NARRATIVE: CASE EVENT DATE: 2020
